FAERS Safety Report 8930059 (Version 1)
Quarter: 2012Q4

REPORT INFORMATION
  Report Type: 
  Country: US (occurrence: US)
  Receive Date: 20121128
  Receipt Date: 20121128
  Transmission Date: 20130627
  Serious: Yes (Death)
  Sender: FDA-Public Use
  Company Number: PHHY2012US107951

PATIENT
  Age: 34 Year
  Sex: Male

DRUGS (8)
  1. MORPHINE [Suspect]
  2. AMITRIPTYLINE [Suspect]
  3. DIPHENHYDRAMINE [Suspect]
  4. LAMOTRIGINE [Suspect]
  5. NORTRIPTYLINE [Suspect]
  6. PREGABALIN [Suspect]
  7. TRAZODONE [Suspect]
  8. META-CHLOROPHENYLPIPERAZINE [Suspect]

REACTIONS (1)
  - Toxicity to various agents [Fatal]
